FAERS Safety Report 8624109-1 (Version None)
Quarter: 2012Q3

REPORT INFORMATION
  Report Type: 
  Country: None (occurrence: None)
  Receive Date: 20120827
  Receipt Date: 20120816
  Transmission Date: 20120928
  Serious: Yes (Other)
  Sender: FDA-Public Use
  Company Number: CA-ASTRAZENECA-2012SE55648

PATIENT
  Age: 68 Year
  Sex: Male

DRUGS (8)
  1. SYMBICORT [Suspect]
     Dosage: OCCASIONALLY UP TO FOUR TIMES A DAY
     Route: 055
  2. BRICANYL [Concomitant]
     Route: 048
  3. ASPIRIN [Concomitant]
     Route: 048
  4. METFORMIN HCL [Concomitant]
     Route: 048
  5. SYMBICORT [Suspect]
     Indication: ASTHMA
     Dosage: TWO INHALATIONS, TWO TIMES A DAY
     Route: 055
     Dates: start: 20070101
  6. DIAMICRON [Concomitant]
     Route: 048
  7. ATORVASTATIN [Concomitant]
     Route: 048
  8. HUMULIN R [Concomitant]
     Route: 042

REACTIONS (6)
  - PALATAL OEDEMA [None]
  - THROAT TIGHTNESS [None]
  - INTENTIONAL DRUG MISUSE [None]
  - UVULITIS [None]
  - DYSPNOEA [None]
  - HYPERSENSITIVITY [None]
